FAERS Safety Report 5524838-2 (Version None)
Quarter: 2007Q4

REPORT INFORMATION
  Report Type: 
  Country: None (occurrence: None)
  Receive Date: 20071126
  Receipt Date: 20071114
  Transmission Date: 20080405
  Serious: Yes (Other)
  Sender: FDA-Public Use
  Company Number: PHEH2006US11469

PATIENT
  Sex: Female

DRUGS (5)
  1. METHYLPHENIDATE HCL [Suspect]
  2. FOCALIN [Suspect]
  3. CONCERTA [Suspect]
  4. RITALIN [Suspect]
  5. ADDERALL 10 [Suspect]

REACTIONS (1)
  - APLASTIC ANAEMIA [None]
